FAERS Safety Report 25329306 (Version 1)
Quarter: 2025Q2

REPORT INFORMATION
  Report Type: Report from Study
  Country: CO (occurrence: CO)
  Receive Date: 20250519
  Receipt Date: 20250519
  Transmission Date: 20250717
  Serious: Yes (Hospitalization, Other)
  Sender: BIOCODEX
  Company Number: CO-BIOCODEX2-2025000128

PATIENT
  Age: 4 Year
  Sex: Female

DRUGS (9)
  1. DIACOMIT [Suspect]
     Active Substance: STIRIPENTOL
     Indication: Severe myoclonic epilepsy of infancy
     Dosage: 1 SACHET OF 500 MG EVERY 12 HOURS
     Route: 048
     Dates: start: 20250129
  2. DIACOMIT [Suspect]
     Active Substance: STIRIPENTOL
     Indication: Severe myoclonic epilepsy of infancy
     Dosage: 1 SACHET OF 250 MG EVERY 12 HOURS
     Route: 048
     Dates: start: 2025
  3. DIACOMIT [Suspect]
     Active Substance: STIRIPENTOL
     Indication: Severe myoclonic epilepsy of infancy
     Dosage: 1 SACHET OF 250 MG IN THE MORNING (EVERY 24 HOURS)
     Route: 048
     Dates: start: 20250228
  4. DIACOMIT [Suspect]
     Active Substance: STIRIPENTOL
     Indication: Severe myoclonic epilepsy of infancy
     Dosage: 500MG/8HOURS
     Route: 048
  5. CLOBAZAM [Concomitant]
     Active Substance: CLOBAZAM
     Indication: Severe myoclonic epilepsy of infancy
     Dosage: 20 MG TWICE A DAY (? TABLET EVERY 12 HOURS, ORALLY)
     Route: 048
     Dates: start: 20231101
  6. CLOBAZAM [Concomitant]
     Active Substance: CLOBAZAM
     Indication: Severe myoclonic epilepsy of infancy
     Dosage: 10 MG EVERY 12 HOURS
     Route: 048
     Dates: start: 20231101
  7. NEVIOT [Concomitant]
     Indication: Severe myoclonic epilepsy of infancy
     Dosage: 0.5CC AT 7:00AM AND 1CC AT 7:00PM
     Route: 048
     Dates: start: 20240301
  8. NEVIOT [Concomitant]
     Indication: Severe myoclonic epilepsy of infancy
     Route: 048
     Dates: start: 20250216, end: 20250222
  9. VALPROIC ACID [Concomitant]
     Active Substance: VALPROIC ACID
     Indication: Severe myoclonic epilepsy of infancy
     Dosage: 3.5ML/8HOURS
     Route: 048
     Dates: start: 20210801

REACTIONS (6)
  - Somnolence [Recovered/Resolved]
  - Sleep disorder [Unknown]
  - Intentional product misuse [Unknown]
  - Intentional underdose [Unknown]
  - Influenza [Recovering/Resolving]
  - Pneumonia [Recovered/Resolved]

NARRATIVE: CASE EVENT DATE: 20250204
